FAERS Safety Report 8589084-7 (Version None)
Quarter: 2012Q3

REPORT INFORMATION
  Report Type: 
  Country: None (occurrence: None)
  Receive Date: 20120813
  Receipt Date: 20120731
  Transmission Date: 20120928
  Serious: No
  Sender: FDA-Public Use
  Company Number: US-BAYER-2012-077377

PATIENT
  Age: 66 Year
  Sex: Female
  Weight: 68.934 kg

DRUGS (2)
  1. BLOOD PRESSURE MEDICATION (NOS) [Concomitant]
  2. ALEVE (CAPLET) [Suspect]
     Indication: ANALGESIC THERAPY
     Dosage: 1 UNK, ONCE DAILY
     Route: 048
     Dates: start: 20120728, end: 20120730

REACTIONS (1)
  - PAIN [None]
